FAERS Safety Report 20709766 (Version 1)
Quarter: 2022Q2

REPORT INFORMATION
  Report Type: Spontaneous
  Country: US (occurrence: None)
  Receive Date: 20220413
  Receipt Date: 20220413
  Transmission Date: 20220721
  Serious: Yes (Other)
  Sender: FDA-Public Use
  Company Number: None

PATIENT
  Age: 54 Year
  Sex: Female
  Weight: 62.1 kg

DRUGS (2)
  1. BOTOX [Suspect]
     Active Substance: ONABOTULINUMTOXINA
     Indication: Muscle relaxant therapy
     Dates: start: 20220201, end: 20220201
  2. EMGALITY [Concomitant]
     Active Substance: GALCANEZUMAB-GNLM

REACTIONS (5)
  - Injection site pain [None]
  - Injection site discharge [None]
  - Injection site swelling [None]
  - Headache [None]
  - Neuralgia [None]

NARRATIVE: CASE EVENT DATE: 20220201
